FAERS Safety Report 12640452 (Version 2)
Quarter: 2016Q3

REPORT INFORMATION
  Report Type: Spontaneous
  Country: FR (occurrence: FR)
  Receive Date: 20160810
  Receipt Date: 20160922
  Transmission Date: 20161109
  Serious: Yes (Other)
  Sender: FDA-Public Use
  Company Number: FR-PFIZER INC-2016369645

PATIENT
  Age: 54 Year
  Sex: Male

DRUGS (8)
  1. GEMCITABINE ACCORD [Suspect]
     Active Substance: GEMCITABINE HYDROCHLORIDE
     Indication: CHOLANGIOCARCINOMA
     Dosage: 1 DF, 1X/DAY
     Route: 041
     Dates: start: 20160502
  2. SPASFON /00765801/ [Concomitant]
     Active Substance: PHLOROGLUCINOL\1,3,5-TRIMETHOXYBENZENE
     Dosage: 2 DF OF 80 MG, 3X/DAY (80 MG 2-2-2)
     Route: 048
  3. OXALIPLATIN. [Suspect]
     Active Substance: OXALIPLATIN
     Indication: CHOLANGIOCARCINOMA
     Dosage: 1 DF, 1X/DAY
     Route: 041
     Dates: start: 20160502
  4. INNOHEP [Concomitant]
     Active Substance: TINZAPARIN SODIUM
     Dosage: UNK
     Route: 058
  5. DELURSAN [Concomitant]
     Active Substance: URSODIOL
     Dosage: 250 MG, 1X/DAY
     Route: 048
  6. SKENAN [Concomitant]
     Active Substance: MORPHINE SULFATE
     Dosage: 10 MG, 2X/DAY
     Route: 048
  7. ACTISKENAN [Concomitant]
     Active Substance: MORPHINE SULFATE
     Dosage: 5 MG, AS NEEDED
  8. KEPPRA [Concomitant]
     Active Substance: LEVETIRACETAM
     Dosage: 1 DF OF 500 MG IN THE MORNING AND 2 DFOF 500 MG IN THE EVENING
     Route: 048

REACTIONS (1)
  - Epilepsy [Recovered/Resolved]

NARRATIVE: CASE EVENT DATE: 20160502
